FAERS Safety Report 9562962 (Version 3)
Quarter: 2014Q3

REPORT INFORMATION
  Report Type: Spontaneous
  Country: US (occurrence: US)
  Receive Date: 20130927
  Receipt Date: 20140815
  Transmission Date: 20150326
  Serious: Yes (Death, Hospitalization, Other)
  Sender: FDA-Public Use
  Company Number: US-009507513-1309USA011206

PATIENT
  Sex: Female
  Weight: 117.91 kg

DRUGS (1)
  1. NUVARING [Suspect]
     Active Substance: ETHINYL ESTRADIOL\ETONOGESTREL
     Indication: CONTRACEPTION
     Dosage: UNK
     Route: 067
     Dates: start: 20110928, end: 20111221

REACTIONS (10)
  - Neck pain [Unknown]
  - Pulmonary embolism [Fatal]
  - Coronary artery disease [Unknown]
  - Deep vein thrombosis [Unknown]
  - Back pain [Unknown]
  - Cardiomegaly [Unknown]
  - Post-traumatic stress disorder [Unknown]
  - Anxiety [Unknown]
  - Substance use [Unknown]
  - Hepatosplenomegaly [Unknown]

NARRATIVE: CASE EVENT DATE: 20111007
